FAERS Safety Report 21937054 (Version 1)
Quarter: 2023Q1

REPORT INFORMATION
  Report Type: Spontaneous
  Country: US (occurrence: US)
  Receive Date: 20230201
  Receipt Date: 20230201
  Transmission Date: 20230417
  Serious: No
  Sender: FDA-Public Use
  Company Number: US-BIOVITRUM-2023US01285

PATIENT
  Sex: Male
  Weight: 8 kg

DRUGS (6)
  1. SYNAGIS [Suspect]
     Active Substance: PALIVIZUMAB
     Indication: Heart disease congenital
  2. AMOXICILLIN [Concomitant]
     Active Substance: AMOXICILLIN
     Dosage: 125 MG/5ML SUSP RECON
  3. VITAMIN D3 [Concomitant]
     Active Substance: CHOLECALCIFEROL
     Dosage: 10(400)/ML DROPS
  4. SYNAGIS [Suspect]
     Active Substance: PALIVIZUMAB
     Indication: Double inlet left ventricle
  5. SYNAGIS [Suspect]
     Active Substance: PALIVIZUMAB
     Indication: Corrected transposition of great vessels
  6. SYNAGIS [Suspect]
     Active Substance: PALIVIZUMAB
     Indication: Premature baby

REACTIONS (1)
  - Ear infection [Unknown]
